FAERS Safety Report 12762932 (Version 2)
Quarter: 2017Q3

REPORT INFORMATION
  Report Type: Report from Study
  Country: None (occurrence: US)
  Receive Date: 20160920
  Receipt Date: 20170904
  Transmission Date: 20171127
  Serious: Yes (Other)
  Sender: FDA-Public Use
  Company Number: US-ABBVIE-16K-163-1727463-00

PATIENT
  Age: 61 Year
  Sex: Female
  Weight: 76.73 kg

DRUGS (2)
  1. HUMIRA [Suspect]
     Active Substance: ADALIMUMAB
     Indication: PSORIATIC ARTHROPATHY
     Route: 058
     Dates: start: 201409, end: 201607
  2. HUMIRA [Suspect]
     Active Substance: ADALIMUMAB
     Route: 058
     Dates: start: 201608

REACTIONS (7)
  - Osteoporosis [Recovering/Resolving]
  - Hypoaesthesia [Not Recovered/Not Resolved]
  - Osteoarthritis [Recovering/Resolving]
  - Osteoporotic fracture [Recovering/Resolving]
  - Paraesthesia [Not Recovered/Not Resolved]
  - Post procedural contusion [Recovering/Resolving]
  - Post procedural complication [Not Recovered/Not Resolved]

NARRATIVE: CASE EVENT DATE: 201607
